FAERS Safety Report 4594622-5 (Version None)
Quarter: 2005Q1

REPORT INFORMATION
  Report Type: 
  Country: None (occurrence: None)
  Receive Date: 20050301
  Receipt Date: 20041105
  Transmission Date: 20050727
  Serious: Yes (Hospitalization)
  Sender: FDA-Public Use
  Company Number: US-BRISTOL-MYERS SQUIBB COMPANY-12758322

PATIENT
  Sex: Male

DRUGS (4)
  1. ERBITUX [Suspect]
     Indication: COLORECTAL CANCER METASTATIC
     Dosage: LOADING DOSE 400 MG/M2 ON 29JUN04; 250 MG/M2 WEEKLY ON 7JUL, 13JUL, AND 26JUL04
     Route: 042
     Dates: start: 20040726, end: 20040726
  2. ALOXI [Concomitant]
  3. CPT-11 [Concomitant]
  4. DIPHENHYDRAMINE HCL [Concomitant]

REACTIONS (1)
  - INTERSTITIAL LUNG DISEASE [None]
